APPROVED DRUG PRODUCT: FENOFIBRATE
Active Ingredient: FENOFIBRATE
Strength: 107MG
Dosage Form/Route: TABLET;ORAL
Application: A076635 | Product #002
Applicant: SUN PHARMACEUTICAL INDUSTRIES LTD
Approved: Oct 31, 2005 | RLD: No | RS: No | Type: RX